FAERS Safety Report 15964901 (Version 1)
Quarter: 2019Q1

REPORT INFORMATION
  Report Type: Report from Study
  Country: ES (occurrence: ES)
  Receive Date: 20190215
  Receipt Date: 20190215
  Transmission Date: 20190418
  Serious: Yes (Death, Hospitalization)
  Sender: FDA-Public Use
  Company Number: ES-ACCORD-107413

PATIENT
  Age: 24 Year
  Sex: Male

DRUGS (7)
  1. SIMVASTATIN. [Concomitant]
     Active Substance: SIMVASTATIN
     Dosage: 0-0-1
     Route: 048
     Dates: start: 20170810
  2. TACROLIMUS ACCORD [Suspect]
     Active Substance: TACROLIMUS
     Indication: PRODUCT USED FOR UNKNOWN INDICATION
     Dosage: SP?STRENGTH; 0.5 MG HARD CAPSULES EFG, 30 CAPSULES
     Route: 048
     Dates: start: 20170902, end: 20170919
  3. SEPTRIN FORTE [Concomitant]
     Active Substance: SULFAMETHOXAZOLE\TRIMETHOPRIM
     Dosage: L-X-V??STRENGTH: 160 MG / 800 MG, 20 TABLETS
     Route: 048
     Dates: start: 20170810
  4. RANITIDINE. [Concomitant]
     Active Substance: RANITIDINE
     Dosage: 300 MG DIA
     Route: 048
     Dates: start: 20170810
  5. GANCICLOVIR. [Suspect]
     Active Substance: GANCICLOVIR
     Indication: ADENOVIRAL HAEMORRHAGIC CYSTITIS
     Route: 042
     Dates: start: 20170911
  6. ADIRO [Concomitant]
     Active Substance: ASPIRIN
     Dosage: 0-1-0?STRENGTH: 100 MG GASTRO-RESISTANT TABLETS EFG, 30 TABLETS
     Route: 048
     Dates: start: 20170810
  7. PONATINIB [Suspect]
     Active Substance: PONATINIB
     Indication: PRODUCT USED FOR UNKNOWN INDICATION
     Dosage: 45 MG DIA
     Route: 048
     Dates: start: 20170902, end: 20170919

REACTIONS (1)
  - Acute kidney injury [Fatal]

NARRATIVE: CASE EVENT DATE: 201709
